FAERS Safety Report 9502617 (Version 2)
Quarter: 2014Q2

REPORT INFORMATION
  Report Type: Spontaneous
  Country: US (occurrence: US)
  Receive Date: 20130906
  Receipt Date: 20140421
  Transmission Date: 20141212
  Serious: Yes (Hospitalization, Disabling)
  Sender: FDA-Public Use
  Company Number: US-SANOFI-AVENTIS-2013SA088929

PATIENT
  Sex: Female

DRUGS (2)
  1. LANTUS SOLOSTAR [Suspect]
     Indication: TYPE 2 DIABETES MELLITUS
     Dosage: 30 U IN AM 20 U IN PM DOSE:50 UNIT(S)
     Route: 058
     Dates: start: 200909
  2. SOLOSTAR [Concomitant]
     Dates: start: 200909

REACTIONS (3)
  - Subdural haematoma [Unknown]
  - Mental impairment [Unknown]
  - Disability [Not Recovered/Not Resolved]
